FAERS Safety Report 11681259 (Version 2)
Quarter: 2015Q4

REPORT INFORMATION
  Report Type: Spontaneous
  Country: US (occurrence: US)
  Receive Date: 20151027
  Receipt Date: 20151104
  Transmission Date: 20160304
  Serious: No
  Sender: FDA-Public Use
  Company Number: US-ELI_LILLY_AND_COMPANY-US201009005159

PATIENT
  Sex: Female

DRUGS (4)
  1. FORTEO [Suspect]
     Active Substance: TERIPARATIDE
     Indication: OSTEOPOROSIS
     Dosage: 20 UG, DAILY (1/D)
     Route: 065
     Dates: start: 20100903
  2. FORTEO [Suspect]
     Active Substance: TERIPARATIDE
     Dosage: 20 UG, DAILY (1/D)
     Route: 065
  3. FORTEO [Suspect]
     Active Substance: TERIPARATIDE
     Dosage: 20 UG, QD
     Route: 065
  4. FORTEO [Suspect]
     Active Substance: TERIPARATIDE
     Dosage: 20 UG, QD
     Route: 065

REACTIONS (12)
  - Injection site pain [Unknown]
  - Contusion [Not Recovered/Not Resolved]
  - Back disorder [Unknown]
  - Pain of skin [Unknown]
  - Erythema [Unknown]
  - Injection site bruising [Unknown]
  - Somnolence [Unknown]
  - Peripheral swelling [Unknown]
  - Malaise [Unknown]
  - Injection site erythema [Unknown]
  - Limb injury [Unknown]
  - Dizziness [Unknown]

NARRATIVE: CASE EVENT DATE: 2010
